FAERS Safety Report 10169712 (Version 1)
Quarter: 2014Q2

REPORT INFORMATION
  Report Type: Spontaneous
  Country: US (occurrence: US)
  Receive Date: 20140513
  Receipt Date: 20140513
  Transmission Date: 20141212
  Serious: Yes (Other)
  Sender: FDA-Public Use
  Company Number: US-PFIZER INC-2014129641

PATIENT
  Age: 66 Year
  Sex: Male
  Weight: 115.65 kg

DRUGS (2)
  1. LYRICA [Suspect]
     Indication: CEREBROVASCULAR ACCIDENT
     Dosage: 25 MG, DAILY
     Dates: start: 20140508
  2. ENDOCET [Interacting]
     Dosage: OXYCODONE HYDROCHLORIDE 10MG / PARACETAMOL 325MG, 4X/DAY
     Dates: start: 2004

REACTIONS (10)
  - Aphagia [Unknown]
  - Bedridden [Unknown]
  - Muscle spasms [Not Recovered/Not Resolved]
  - Tension [Unknown]
  - Euphoric mood [Unknown]
  - Hypoaesthesia [Unknown]
  - Pain in extremity [Unknown]
  - Poor quality sleep [Unknown]
  - Joint stiffness [Unknown]
  - Drug interaction [Unknown]
